FAERS Safety Report 21557782 (Version 1)
Quarter: 2022Q4

REPORT INFORMATION
  Report Type: Spontaneous
  Country: US (occurrence: None)
  Receive Date: 20221103
  Receipt Date: 20221103
  Transmission Date: 20230113
  Serious: Yes (Other)
  Sender: FDA-Public Use
  Company Number: None

PATIENT
  Age: 43 Year
  Sex: Female
  Weight: 120.2 kg

DRUGS (1)
  1. CUVITRU [Suspect]
     Active Substance: HUMAN IMMUNOGLOBULIN G
     Route: 058
     Dates: start: 20220729, end: 20220729

REACTIONS (4)
  - Cough [None]
  - Wheezing [None]
  - Oropharyngeal discomfort [None]
  - Infusion related reaction [None]

NARRATIVE: CASE EVENT DATE: 20220729
